FAERS Safety Report 6751464-X (Version None)
Quarter: 2010Q2

REPORT INFORMATION
  Report Type: 
  Country: None (occurrence: None)
  Receive Date: 20100528
  Receipt Date: 20100517
  Transmission Date: 20101027
  Serious: Yes (Hospitalization, Other)
  Sender: FDA-Public Use
  Company Number: 7004034

PATIENT
  Age: 44 Year
  Sex: Male
  Weight: 80 kg

DRUGS (4)
  1. REBIF [Suspect]
     Dosage: 22, 3 N 1  WK, SUBCUTANEOUS
     Route: 058
     Dates: start: 20100329
  2. LYRICA [Concomitant]
  3. IBUPROFEN [Concomitant]
  4. AMITRIPTILIN (AMITRIPTYLINE) [Concomitant]

REACTIONS (3)
  - DIZZINESS [None]
  - PARALYSIS [None]
  - VERTIGO POSITIONAL [None]
